FAERS Safety Report 4314642-5 (Version None)
Quarter: 2004Q1

REPORT INFORMATION
  Report Type: 
  Country: None (occurrence: None)
  Receive Date: 20040308
  Receipt Date: 20040226
  Transmission Date: 20041129
  Serious: No
  Sender: FDA-Public Use
  Company Number: J081-002-001570

PATIENT
  Age: 79 Year
  Sex: Male

DRUGS (3)
  1. ARICEPT [Suspect]
     Indication: DEMENTIA ALZHEIMER'S TYPE
     Dosage: SEE IMAGE, ORAL
     Route: 048
     Dates: start: 20000602, end: 20000615
  2. ARICEPT [Suspect]
     Indication: DEMENTIA ALZHEIMER'S TYPE
     Dosage: SEE IMAGE, ORAL
     Route: 048
     Dates: start: 20000616, end: 20030810
  3. SYMMETREL [Concomitant]

REACTIONS (7)
  - DIZZINESS [None]
  - FALL [None]
  - FLUSHING [None]
  - LACERATION [None]
  - PROGRESSIVE SUPRANUCLEAR PALSY [None]
  - RIB FRACTURE [None]
  - SUBDURAL HAEMATOMA [None]
